FAERS Safety Report 24757370 (Version 1)
Quarter: 2024Q4

REPORT INFORMATION
  Report Type: Report from Study
  Country: AR (occurrence: AR)
  Receive Date: 20241220
  Receipt Date: 20241220
  Transmission Date: 20250115
  Serious: Yes (Life-Threatening, Other)
  Sender: RECORDATI
  Company Number: AR-RECORDATI RARE DISEASE INC.-2024009182

PATIENT

DRUGS (1)
  1. SIGNIFOR LAR [Suspect]
     Active Substance: PASIREOTIDE PAMOATE
     Indication: Pituitary-dependent Cushing^s syndrome
     Dosage: 60 MG, EVERY FOUR WEEKS
     Route: 030
     Dates: start: 20221201

REACTIONS (9)
  - Cardiac arrest [Not Recovered/Not Resolved]
  - Bone fissure [Not Recovered/Not Resolved]
  - Muscular weakness [Unknown]
  - Musculoskeletal disorder [Not Recovered/Not Resolved]
  - Blood potassium decreased [Not Recovered/Not Resolved]
  - Myalgia [Not Recovered/Not Resolved]
  - Gait disturbance [Not Recovered/Not Resolved]
  - Hypertension [Not Recovered/Not Resolved]
  - Pain [Unknown]

NARRATIVE: CASE EVENT DATE: 20240101
